FAERS Safety Report 8360413-2 (Version None)
Quarter: 2012Q1

REPORT INFORMATION
  Report Type: 
  Country: None (occurrence: None)
  Receive Date: 20120315
  Receipt Date: 20110309
  Transmission Date: 20120608
  Serious: Yes (Other)
  Sender: FDA-Public Use
  Company Number: PHHY2011US16805

PATIENT
  Age: 47 Year
  Sex: Female

DRUGS (4)
  1. GILENYA [Suspect]
     Indication: MULTIPLE SCLEROSIS
     Dosage: 0.5 MG, QD, ORAL
     Route: 048
  2. LEVOTHYROXINE SODIUM [Concomitant]
  3. FLONASE [Concomitant]
  4. ATROVENT [Concomitant]

REACTIONS (4)
  - RASH [None]
  - SKIN IRRITATION [None]
  - HERPES ZOSTER [None]
  - PAIN OF SKIN [None]
